FAERS Safety Report 23835538 (Version 1)
Quarter: 2024Q2

REPORT INFORMATION
  Report Type: Spontaneous
  Country: US (occurrence: US)
  Receive Date: 20240509
  Receipt Date: 20240509
  Transmission Date: 20240716
  Serious: No
  Sender: FDA-Public Use
  Company Number: US-STI Pharma LLC-2156734

PATIENT
  Age: 54 Year
  Sex: Male

DRUGS (2)
  1. ETHAMBUTOL HYDROCHLORIDE [Suspect]
     Active Substance: ETHAMBUTOL HYDROCHLORIDE
  2. IV Antibiotic [Concomitant]

REACTIONS (1)
  - Abnormal loss of weight [Unknown]
